FAERS Safety Report 8041663-1 (Version None)
Quarter: 2012Q1

REPORT INFORMATION
  Report Type: 
  Country: None (occurrence: None)
  Receive Date: 20120112
  Receipt Date: 20120104
  Transmission Date: 20120608
  Serious: Yes (Hospitalization, Other)
  Sender: FDA-Public Use
  Company Number: US-ELI_LILLY_AND_COMPANY-US201201001850

PATIENT
  Sex: Female

DRUGS (1)
  1. STRATTERA [Suspect]
     Indication: ATTENTION DEFICIT/HYPERACTIVITY DISORDER
     Dosage: 100 MG, QD
     Dates: start: 20020101, end: 20100101

REACTIONS (6)
  - SCHIZOAFFECTIVE DISORDER [None]
  - POLYCYSTIC OVARIES [None]
  - OVARIAN DISORDER [None]
  - FALL [None]
  - SUICIDE ATTEMPT [None]
  - ANKLE FRACTURE [None]
